FAERS Safety Report 4507048-7 (Version None)
Quarter: 2004Q4

REPORT INFORMATION
  Report Type: 
  Country: None (occurrence: None)
  Receive Date: 20041122
  Receipt Date: 20030605
  Transmission Date: 20050328
  Serious: Yes (Hospitalization, Disabling, Other)
  Sender: FDA-Public Use
  Company Number: US-MERCK-0306USA00861

PATIENT
  Sex: Male
  Weight: 120 kg

DRUGS (22)
  1. VIOXX [Suspect]
     Indication: ARTHRALGIA
     Route: 048
     Dates: start: 19991112, end: 20000611
  2. VIOXX [Suspect]
     Route: 048
     Dates: start: 20000901, end: 20001029
  3. VIOXX [Suspect]
     Route: 048
     Dates: start: 20000612, end: 20000831
  4. VIOXX [Suspect]
     Route: 048
     Dates: start: 20001030, end: 20001228
  5. VIOXX [Suspect]
     Route: 048
     Dates: start: 20001229, end: 20010114
  6. VIOXX [Suspect]
     Route: 048
     Dates: start: 20010115, end: 20010122
  7. VIOXX [Suspect]
     Route: 048
     Dates: start: 20010123, end: 20010401
  8. VIOXX [Suspect]
     Route: 048
     Dates: start: 19991112, end: 20000611
  9. VIOXX [Suspect]
     Route: 048
     Dates: start: 20000901, end: 20001029
  10. VIOXX [Suspect]
     Route: 048
     Dates: start: 20000612, end: 20000831
  11. VIOXX [Suspect]
     Route: 048
     Dates: start: 20001030, end: 20001228
  12. VIOXX [Suspect]
     Route: 048
     Dates: start: 20001229, end: 20010114
  13. VIOXX [Suspect]
     Route: 048
     Dates: start: 20010115, end: 20010122
  14. VIOXX [Suspect]
     Route: 048
     Dates: start: 20010123, end: 20010401
  15. IMDUR [Concomitant]
     Route: 065
  16. MONOPRIL [Concomitant]
     Route: 065
  17. LIPITOR [Concomitant]
     Route: 065
  18. GLUCOTROL [Concomitant]
     Route: 065
  19. HYDRODIURIL [Concomitant]
     Route: 048
  20. HYDRODIURIL [Concomitant]
     Route: 048
  21. TOPROL-XL [Concomitant]
     Route: 048
  22. CARDURA [Concomitant]
     Route: 065

REACTIONS (55)
  - ABDOMINAL PAIN [None]
  - ADVERSE EVENT [None]
  - ARTHRALGIA [None]
  - ATHEROSCLEROSIS [None]
  - ATRIAL FIBRILLATION [None]
  - BLISTER [None]
  - BLOOD PRESSURE INADEQUATELY CONTROLLED [None]
  - CARDIAC MURMUR [None]
  - CHEST PAIN [None]
  - COLONIC POLYP [None]
  - CONJUNCTIVAL HAEMORRHAGE [None]
  - CORONARY ARTERY DISEASE [None]
  - DERMATITIS CONTACT [None]
  - DIARRHOEA [None]
  - DIASTOLIC DYSFUNCTION [None]
  - DILATATION ATRIAL [None]
  - DIVERTICULUM INTESTINAL [None]
  - DYSGEUSIA [None]
  - DYSPEPSIA [None]
  - DYSPNOEA [None]
  - EYE HAEMORRHAGE [None]
  - FATIGUE [None]
  - FURUNCLE [None]
  - GASTROENTERITIS [None]
  - GASTROOESOPHAGEAL REFLUX DISEASE [None]
  - HAEMORRHOIDS [None]
  - HEADACHE [None]
  - HEPATIC CYST [None]
  - HEPATIC STEATOSIS [None]
  - HIATUS HERNIA [None]
  - HYPERCALCAEMIA [None]
  - HYPERTENSION [None]
  - INJURY [None]
  - INTERMITTENT CLAUDICATION [None]
  - LARYNGITIS [None]
  - MUSCLE CRAMP [None]
  - MYOCARDIAL ISCHAEMIA [None]
  - NAUSEA [None]
  - PALPITATIONS [None]
  - PANCREATITIS ACUTE [None]
  - PERIPHERAL VASCULAR DISORDER [None]
  - PULMONARY CALCIFICATION [None]
  - PULMONARY FIBROSIS [None]
  - RASH MACULAR [None]
  - RECTAL POLYP [None]
  - RENAL CYST [None]
  - RENAL FAILURE CHRONIC [None]
  - RHINITIS ALLERGIC [None]
  - ROTATOR CUFF SYNDROME [None]
  - SCAR [None]
  - SINUSITIS [None]
  - SLEEP APNOEA SYNDROME [None]
  - TRICUSPID VALVE INCOMPETENCE [None]
  - ULCER [None]
  - VENTRICULAR HYPERTROPHY [None]
